FAERS Safety Report 9748133 (Version 1)
Quarter: 2013Q4

REPORT INFORMATION
  Report Type: Spontaneous
  Country: US (occurrence: US)
  Receive Date: 20131212
  Receipt Date: 20131212
  Transmission Date: 20140711
  Serious: No
  Sender: FDA-Public Use
  Company Number: US-PFIZER INC-2013350845

PATIENT
  Sex: Male

DRUGS (2)
  1. CELEBREX [Suspect]
     Dosage: UNK
  2. VIAGRA [Interacting]
     Dosage: 25 MG, UNK

REACTIONS (4)
  - Drug interaction [Unknown]
  - Erection increased [Recovered/Resolved]
  - Drug intolerance [Unknown]
  - Penile size reduced [Unknown]
